FAERS Safety Report 11466684 (Version 1)
Quarter: 2015Q3

REPORT INFORMATION
  Report Type: Spontaneous
  Country: US (occurrence: US)
  Receive Date: 20150907
  Receipt Date: 20150907
  Transmission Date: 20151125
  Serious: Yes (Other)
  Sender: FDA-Public Use
  Company Number: US-TAKEDA-2014TUS014469

PATIENT

DRUGS (12)
  1. ACTOS [Suspect]
     Active Substance: PIOGLITAZONE HYDROCHLORIDE
     Dosage: 45 MG, UNK
     Route: 048
     Dates: start: 201303, end: 201305
  2. METFORMIN [Concomitant]
     Active Substance: METFORMIN HYDROCHLORIDE
     Dosage: 500 MG, TID
     Dates: start: 2005, end: 2006
  3. GLUCOTROL [Concomitant]
     Active Substance: GLIPIZIDE
     Dosage: 15 MG, UNK
     Dates: start: 2007
  4. METFORMIN [Concomitant]
     Active Substance: METFORMIN HYDROCHLORIDE
     Dosage: 1000 MG, BID
     Dates: start: 2009
  5. LANTUS [Concomitant]
     Active Substance: INSULIN GLARGINE
     Dosage: 20 IU, UNK
     Dates: start: 2013, end: 2014
  6. ACTOS [Suspect]
     Active Substance: PIOGLITAZONE HYDROCHLORIDE
     Indication: TYPE 2 DIABETES MELLITUS
     Dosage: 30 MG, UNK
     Route: 048
     Dates: start: 200712, end: 201302
  7. METFORMIN [Concomitant]
     Active Substance: METFORMIN HYDROCHLORIDE
     Dosage: 500 MG, QID
     Dates: start: 2006, end: 2009
  8. LEVEMIR [Concomitant]
     Active Substance: INSULIN DETEMIR
     Dosage: 10 IU, QD
     Dates: start: 2014
  9. GLUCOTROL [Concomitant]
     Active Substance: GLIPIZIDE
     Dosage: 5 MG, UNK
     Dates: start: 2004, end: 2006
  10. GLUCOTROL [Concomitant]
     Active Substance: GLIPIZIDE
     Dosage: 10 MG, UNK
     Dates: start: 2006, end: 2007
  11. GLUCOTROL [Concomitant]
     Active Substance: GLIPIZIDE
     Dosage: 20 MG, UNK
     Dates: start: 2007, end: 2013
  12. METFORMIN [Concomitant]
     Active Substance: METFORMIN HYDROCHLORIDE
     Dosage: 500 MG, TID
     Dates: start: 2009, end: 2013

REACTIONS (1)
  - Bladder cancer [Unknown]

NARRATIVE: CASE EVENT DATE: 20140501
